FAERS Safety Report 15214148 (Version 1)
Quarter: 2018Q3

REPORT INFORMATION
  Report Type: Spontaneous
  Country: ES (occurrence: ES)
  Receive Date: 20180730
  Receipt Date: 20180730
  Transmission Date: 20181010
  Serious: Yes (Other)
  Sender: FDA-Public Use
  Company Number: PHHY2018ES051219

PATIENT
  Age: 4 Year
  Sex: Female

DRUGS (4)
  1. ETHAMBUTOL [Suspect]
     Active Substance: ETHAMBUTOL HYDROCHLORIDE
     Indication: PROPHYLAXIS
     Dosage: UNK
     Route: 065
  2. ISONIAZID. [Suspect]
     Active Substance: ISONIAZID
     Indication: PROPHYLAXIS
     Dosage: UNK
     Route: 065
  3. PYRAZINAMIDE. [Suspect]
     Active Substance: PYRAZINAMIDE
     Indication: PROPHYLAXIS
     Dosage: UNK
     Route: 065
  4. RIFAMPICIN [Suspect]
     Active Substance: RIFAMPIN
     Indication: PROPHYLAXIS
     Dosage: UNK
     Route: 065

REACTIONS (5)
  - Plasmodium falciparum infection [Recovering/Resolving]
  - Microcytic anaemia [Recovering/Resolving]
  - Reticulocytosis [Recovering/Resolving]
  - Drug resistance [Unknown]
  - Thrombocytopenia [Recovering/Resolving]
